FAERS Safety Report 4859684-6 (Version None)
Quarter: 2005Q4

REPORT INFORMATION
  Report Type: 
  Country: None (occurrence: None)
  Receive Date: 20051219
  Receipt Date: 20051212
  Transmission Date: 20060501
  Serious: Yes (Life-Threatening, Hospitalization, Disabling)
  Sender: FDA-Public Use
  Company Number: DE-SANOFI-SYNTHELABO-F04200500175

PATIENT
  Sex: Male

DRUGS (3)
  1. ELOXATIN [Suspect]
     Indication: RECTAL CANCER
     Route: 041
     Dates: start: 20051207, end: 20051207
  2. CAPECITABIN [Suspect]
     Indication: RECTAL CANCER
     Route: 048
     Dates: start: 20051130, end: 20051211
  3. CETUXIMAB [Suspect]
     Indication: RECTAL CANCER
     Route: 041
     Dates: start: 20051207, end: 20051207

REACTIONS (7)
  - ANAEMIA [None]
  - DYSPHAGIA [None]
  - ENTERITIS [None]
  - INTESTINAL HAEMORRHAGE [None]
  - LEUKOPENIA [None]
  - MUCOSAL INFLAMMATION [None]
  - THROMBOCYTOPENIA [None]
